FAERS Safety Report 19659738 (Version 1)
Quarter: 2021Q3

REPORT INFORMATION
  Report Type: Spontaneous
  Country: JP (occurrence: JP)
  Receive Date: 20210804
  Receipt Date: 20210804
  Transmission Date: 20211014
  Serious: Yes (Life-Threatening, Other)
  Sender: FDA-Public Use
  Company Number: JP-BAXTER-2021BAX009616

PATIENT
  Age: 33 Year
  Sex: Female

DRUGS (6)
  1. CELLTOP 50 MG, CAPSULE [Suspect]
     Active Substance: ETOPOSIDE
     Indication: ANGIOCENTRIC LYMPHOMA
     Dosage: ICE THERAPY
     Route: 065
     Dates: start: 20210421, end: 20210421
  2. METHOTREXATE. [Suspect]
     Active Substance: METHOTREXATE
     Indication: ANGIOCENTRIC LYMPHOMA
     Dosage: TRIPLE IT THERAPY
     Route: 037
     Dates: start: 20210421, end: 20210421
  3. HYDROCORTISONE. [Suspect]
     Active Substance: HYDROCORTISONE
     Indication: ANGIOCENTRIC LYMPHOMA
     Dosage: TRIPLE IT THERAPY
     Route: 037
     Dates: start: 20210421, end: 20210421
  4. CYTARABINE. [Suspect]
     Active Substance: CYTARABINE
     Indication: ANGIOCENTRIC LYMPHOMA
     Dosage: TRIPLE IT THERAPY
     Route: 037
     Dates: start: 20210421, end: 20210421
  5. HOLOXAN [Suspect]
     Active Substance: IFOSFAMIDE
     Indication: ANGIOCENTRIC LYMPHOMA
     Dosage: ICE THERAPY
     Route: 042
     Dates: start: 20210421, end: 20210421
  6. CISPLATIN. [Suspect]
     Active Substance: CISPLATIN
     Indication: ANGIOCENTRIC LYMPHOMA
     Dosage: ICE THERAPY
     Route: 065
     Dates: start: 20210421, end: 20210421

REACTIONS (4)
  - Encephalopathy [Recovering/Resolving]
  - Bradycardia foetal [Recovering/Resolving]
  - Respiratory arrest [Recovering/Resolving]
  - Maternal exposure during pregnancy [Unknown]

NARRATIVE: CASE EVENT DATE: 20210421
